FAERS Safety Report 11337064 (Version 1)
Quarter: 2015Q3

REPORT INFORMATION
  Report Type: Spontaneous
  Country: US (occurrence: US)
  Receive Date: 20150804
  Receipt Date: 20150804
  Transmission Date: 20151125
  Serious: Yes (Hospitalization)
  Sender: FDA-Public Use
  Company Number: US-INCYTE CORPORATION-2015IN003667

PATIENT
  Sex: Female

DRUGS (9)
  1. POTASSIUM CHLORIDE. [Concomitant]
     Active Substance: POTASSIUM CHLORIDE
  2. NIACIN. [Concomitant]
     Active Substance: NIACIN
  3. NASONEX [Concomitant]
     Active Substance: MOMETASONE FUROATE
  4. QVAR [Concomitant]
     Active Substance: BECLOMETHASONE DIPROPIONATE
  5. JAKAFI [Suspect]
     Active Substance: RUXOLITINIB
     Dosage: 20 MG, BID
     Route: 048
     Dates: start: 20140108
  6. PRILOSEC [Concomitant]
     Active Substance: OMEPRAZOLE MAGNESIUM
  7. TOPROL XL [Concomitant]
     Active Substance: METOPROLOL SUCCINATE
  8. LOSARTAN. [Concomitant]
     Active Substance: LOSARTAN
  9. CALCIUM+MAGNESIUM [Concomitant]

REACTIONS (1)
  - Ascites [Unknown]

NARRATIVE: CASE EVENT DATE: 2015
